FAERS Safety Report 7391403-4 (Version None)
Quarter: 2011Q2

REPORT INFORMATION
  Report Type: 
  Country: None (occurrence: None)
  Receive Date: 20110404
  Receipt Date: 20110323
  Transmission Date: 20111010
  Serious: Yes (Hospitalization)
  Sender: FDA-Public Use
  Company Number: GB-SANOFI-AVENTIS-2011SA017950

PATIENT
  Sex: Female

DRUGS (2)
  1. OXALIPLATIN [Suspect]
  2. XELODA [Suspect]

REACTIONS (2)
  - DIARRHOEA [None]
  - CARDIAC DISORDER [None]
